FAERS Safety Report 4617992-8 (Version None)
Quarter: 2005Q1

REPORT INFORMATION
  Report Type: 
  Country: None (occurrence: None)
  Receive Date: 20050322
  Receipt Date: 20050314
  Transmission Date: 20050727
  Serious: Yes (Disabling)
  Sender: FDA-Public Use
  Company Number: 200510510BWH

PATIENT
  Age: 60 Year
  Sex: Male

DRUGS (1)
  1. LEVITRA [Suspect]
     Indication: ERECTILE DYSFUNCTION
     Dosage: 10 MG, ONCE
     Dates: start: 20050306

REACTIONS (2)
  - CONDITION AGGRAVATED [None]
  - INTERMITTENT CLAUDICATION [None]
